FAERS Safety Report 9124721 (Version 1)
Quarter: 2013Q1

REPORT INFORMATION
  Report Type: Report from Study
  Country: US (occurrence: US)
  Receive Date: 20130227
  Receipt Date: 20130227
  Transmission Date: 20140127
  Serious: Yes (Death, Other)
  Sender: FDA-Public Use
  Company Number: US-BAXTER-2013BAX007151

PATIENT
  Age: 15 Year
  Sex: Male

DRUGS (5)
  1. IFEX (IFOSFAMIDE FOR INJECTION, USP) [Suspect]
     Indication: OSTEOSARCOMA
     Dosage: 1.6 G/M2/D
     Route: 042
  2. DOXORUBICIN [Suspect]
     Indication: OSTEOSARCOMA
  3. METHOTREXATE [Suspect]
     Indication: OSTEOSARCOMA
  4. CISPLATIN [Suspect]
     Indication: OSTEOSARCOMA
  5. MESNA [Concomitant]
     Indication: OSTEOSARCOMA

REACTIONS (3)
  - Fanconi syndrome [Not Recovered/Not Resolved]
  - Neurotoxicity [Unknown]
  - Respiratory failure [Fatal]
